FAERS Safety Report 4323090-3 (Version None)
Quarter: 2004Q1

REPORT INFORMATION
  Report Type: 
  Country: None (occurrence: None)
  Receive Date: 20040322
  Receipt Date: 20040309
  Transmission Date: 20041129
  Serious: No
  Sender: FDA-Public Use
  Company Number: A113986

PATIENT
  Age: 16 Year
  Sex: Male
  Weight: 74.8435 kg

DRUGS (2)
  1. ZYRTEC [Suspect]
     Indication: URTICARIA
     Dosage: 10 MG (DAILY); UNKNOWN
     Route: 065
     Dates: start: 20010607, end: 20010607
  2. BENADRYL (DIPHENHYDRAMINE, MENTHOL, AMMONIUM CHLORIDE, SODIUM CITRATE) [Concomitant]

REACTIONS (5)
  - AGGRESSION [None]
  - AGITATION [None]
  - CONVERSION DISORDER [None]
  - EMOTIONAL DISORDER [None]
  - HALLUCINATION [None]
